FAERS Safety Report 21080299 (Version 4)
Quarter: 2022Q4

REPORT INFORMATION
  Report Type: Spontaneous
  Country: ES (occurrence: ES)
  Receive Date: 20220714
  Receipt Date: 20221201
  Transmission Date: 20230113
  Serious: Yes (Disabling)
  Sender: FDA-Public Use
  Company Number: ES-BIAL-BIAL-10570

PATIENT
  Age: 88 Year
  Sex: Male

DRUGS (10)
  1. OMEPRAZOLE [Suspect]
     Active Substance: OMEPRAZOLE
     Indication: Gastrooesophageal reflux disease
     Dosage: 20 MILLIGRAM, ONCE A DAY, (1-0-0, NON-COMPLIANT)
     Route: 048
  2. OMEPRAZOLE [Suspect]
     Active Substance: OMEPRAZOLE
     Indication: Gastrooesophageal reflux disease
     Dosage: 1 DOSAGE FORM, ONCE A DAY (1/0/0) TREATMENT NON-COMPLIANCE
     Route: 065
  3. ENALAPRIL MALEATE\NITRENDIPINE [Suspect]
     Active Substance: ENALAPRIL MALEATE\NITRENDIPINE
     Indication: Hypertension
     Dosage: 10 MILLIGRAM, ONCE A DAY 10 MG+ 20 MG(1/0/0)()
     Route: 065
  4. ENALAPRIL MALEATE\NITRENDIPINE [Suspect]
     Active Substance: ENALAPRIL MALEATE\NITRENDIPINE
     Dosage: 1 DOSAGE FORM, ONCE A DAY (10 MG/20 MG, 1X PER DAY )
     Route: 065
  5. FERROUS SULFATE [Suspect]
     Active Substance: FERROUS SULFATE
     Indication: Anaemia
     Dosage: 325 MILLIGRAM, ONCE A DAY, (1/0/0, NON-COMPLIANT)
     Route: 065
  6. CARBOCYSTEINE [Concomitant]
     Active Substance: CARBOCYSTEINE
     Indication: Cough
     Dosage: 50 MILLIGRAM PER MILLILETER, 3 TIMES A DAY ((10/10/10))
     Route: 065
  7. CARBOCYSTEINE [Concomitant]
     Active Substance: CARBOCYSTEINE
     Dosage: 3 DOSAGE FORM, ONCE A DAY (1/1/1)
     Route: 065
  8. ACETAMINOPHEN [Concomitant]
     Active Substance: ACETAMINOPHEN
     Indication: Pain
     Dosage: 1 GRAM, AS NECESSARY, (AS NEEDED)
     Route: 065
  9. ACETAMINOPHEN [Concomitant]
     Active Substance: ACETAMINOPHEN
     Indication: Musculoskeletal pain
  10. SIMVASTATIN [Concomitant]
     Active Substance: SIMVASTATIN
     Indication: Hyperlipidaemia
     Dosage: 20 MILLIGRAM, ONCE A DAY, (0/0/1)
     Route: 065

REACTIONS (6)
  - Cough [Recovering/Resolving]
  - Treatment noncompliance [Recovered/Resolved]
  - Oropharyngeal pain [Recovering/Resolving]
  - Asthenia [Recovering/Resolving]
  - Throat irritation [Recovering/Resolving]
  - Drug ineffective [Unknown]
